FAERS Safety Report 19899928 (Version 1)
Quarter: 2021Q3

REPORT INFORMATION
  Report Type: Spontaneous
  Country: NL (occurrence: NL)
  Receive Date: 20210929
  Receipt Date: 20210929
  Transmission Date: 20211014
  Serious: Yes (Hospitalization, Other)
  Sender: FDA-Public Use
  Company Number: NL-ASTRAZENECA-2021A734675

PATIENT
  Age: 52 Year
  Sex: Female

DRUGS (2)
  1. FULVESTRANT. [Suspect]
     Active Substance: FULVESTRANT
     Dosage: 500.0MG UNKNOWN
     Route: 065
  2. PALBOCICLIB [Suspect]
     Active Substance: PALBOCICLIB
     Dosage: 125.0MG UNKNOWN
     Route: 065
     Dates: start: 20190701, end: 20210810

REACTIONS (7)
  - Cellulitis [Unknown]
  - Myalgia [Unknown]
  - Asthenia [Unknown]
  - Bacterial infection [Unknown]
  - Eating disorder [Unknown]
  - Diarrhoea haemorrhagic [Unknown]
  - Headache [Unknown]

NARRATIVE: CASE EVENT DATE: 20190701
